FAERS Safety Report 14712748 (Version 2)
Quarter: 2018Q2

REPORT INFORMATION
  Report Type: Spontaneous
  Country: US (occurrence: US)
  Receive Date: 20180404
  Receipt Date: 20180404
  Transmission Date: 20180711
  Serious: Yes (Other)
  Sender: FDA-Public Use
  Company Number: US-VERICEL CORPORATION-VCEL-2018-000047

PATIENT
  Age: 45 Year
  Sex: Female

DRUGS (1)
  1. CARTICEL [Suspect]
     Active Substance: AUTOLOGOUS CULTURED CHONDROCYTES
     Indication: CHONDROPATHY
     Dosage: UNK
     Route: 065

REACTIONS (2)
  - Transplant failure [Unknown]
  - Decreased activity [Unknown]
